FAERS Safety Report 6502630-X (Version None)
Quarter: 2009Q4

REPORT INFORMATION
  Report Type: 
  Country: None (occurrence: None)
  Receive Date: 20091127
  Receipt Date: 20090812
  Transmission Date: 20100525
  Serious: No
  Sender: FDA-Public Use
  Company Number: 001522

PATIENT
  Sex: Male

DRUGS (1)
  1. LACOSAMIDE [Suspect]
     Dosage: (50 MG BID ORAL), (100 MG BID ORAL)
     Route: 048

REACTIONS (1)
  - HALLUCINATION [None]
